FAERS Safety Report 15363177 (Version 2)
Quarter: 2019Q4

REPORT INFORMATION
  Report Type: Spontaneous
  Country: IN (occurrence: IN)
  Receive Date: 20180907
  Receipt Date: 20191007
  Transmission Date: 20200122
  Serious: Yes (Other)
  Sender: FDA-Public Use
  Company Number: IN-PFIZER INC-2018069843

PATIENT
  Age: 65 Year
  Sex: Female

DRUGS (2)
  1. CRIZALK [Suspect]
     Active Substance: CRIZOTINIB
     Indication: NON-SMALL CELL LUNG CANCER
     Dosage: UNK
  2. CRIZALK [Suspect]
     Active Substance: CRIZOTINIB
     Dosage: 250 MG, 2X/DAY
     Route: 048
     Dates: start: 20170116

REACTIONS (24)
  - Oesophageal ulcer [Unknown]
  - Pleural effusion [Unknown]
  - Ovarian cyst [Unknown]
  - Blood pressure decreased [Unknown]
  - Chest pain [Not Recovered/Not Resolved]
  - Restlessness [Unknown]
  - CSF protein increased [Unknown]
  - Asthenia [Unknown]
  - Pericardial effusion [Unknown]
  - Hallucination [Recovering/Resolving]
  - Nasopharyngitis [Unknown]
  - Hypophagia [Unknown]
  - Transient ischaemic attack [Unknown]
  - Neoplasm progression [Unknown]
  - Dizziness [Unknown]
  - Neck pain [Unknown]
  - Intervertebral disc protrusion [Unknown]
  - Spinal osteoarthritis [Unknown]
  - Bone lesion [Unknown]
  - Insomnia [Unknown]
  - Hypoalbuminaemia [Unknown]
  - Butterfly rash [Recovered/Resolved]
  - Vertigo [Unknown]
  - Pyrexia [Not Recovered/Not Resolved]

NARRATIVE: CASE EVENT DATE: 20161202
